FAERS Safety Report 12249750 (Version 3)
Quarter: 2017Q2

REPORT INFORMATION
  Report Type: Spontaneous
  Country: AT (occurrence: AT)
  Receive Date: 20160408
  Receipt Date: 20170516
  Transmission Date: 20170830
  Serious: Yes (Death)
  Sender: FDA-Public Use
  Company Number: AT-JNJFOC-20160405896

PATIENT
  Age: 77 Year
  Sex: Female
  Weight: 55 kg

DRUGS (7)
  1. IMBRUVICA [Suspect]
     Active Substance: IBRUTINIB
     Indication: NON-HODGKIN^S LYMPHOMA
     Route: 048
     Dates: start: 20160320, end: 20160328
  2. VITAMINS WITH MINERALS [Concomitant]
     Active Substance: MINERALS\VITAMINS
     Dosage: ONE DOSE IN MORNING AND ONE IN EVENING
     Route: 065
  3. AEROMUC [Concomitant]
     Dosage: 1 DOSE IN THE MORNING
     Route: 065
  4. LUUF [Concomitant]
     Route: 065
  5. CITALOPRAM HYDROBROMIDE. [Concomitant]
     Active Substance: CITALOPRAM HYDROBROMIDE
     Route: 065
  6. METOCLOPRAMIDE HYDROCHLORIDE. [Concomitant]
     Active Substance: METOCLOPRAMIDE HYDROCHLORIDE
     Route: 065
  7. PANTOPRAZOLE SODIUM SESQUIHYDRATE [Concomitant]
     Active Substance: PANTOPRAZOLE SODIUM
     Dosage: ONE DOSE IN THE MORNING
     Route: 065

REACTIONS (8)
  - Sepsis [Fatal]
  - Leukostasis syndrome [Unknown]
  - Leukocytosis [Unknown]
  - Secondary immunodeficiency [Unknown]
  - Diarrhoea [Unknown]
  - Pneumonia haemophilus [Fatal]
  - Septic shock [Fatal]
  - Intestinal ischaemia [Unknown]

NARRATIVE: CASE EVENT DATE: 201603
